FAERS Safety Report 8474010-1 (Version None)
Quarter: 2012Q2

REPORT INFORMATION
  Report Type: 
  Country: None (occurrence: None)
  Receive Date: 20120628
  Receipt Date: 20120516
  Transmission Date: 20120825
  Serious: Yes (Other)
  Sender: FDA-Public Use
  Company Number: US-MYLANLABS-2012S1006295

PATIENT
  Age: 31 Year
  Sex: Female

DRUGS (4)
  1. DEPAKOTE [Concomitant]
  2. RESTORIL [Concomitant]
  3. CLOZAPINE [Suspect]
     Route: 048
     Dates: end: 20120320
  4. CLOZAPINE [Suspect]
     Route: 048
     Dates: end: 20120320

REACTIONS (1)
  - GRANULOCYTOPENIA [None]
